FAERS Safety Report 5240531-8 (Version None)
Quarter: 2007Q1

REPORT INFORMATION
  Report Type: 
  Country: None (occurrence: None)
  Receive Date: 20070219
  Receipt Date: 20070208
  Transmission Date: 20070707
  Serious: Yes (Hospitalization)
  Sender: FDA-Public Use
  Company Number: US-ROCHE-478697

PATIENT
  Age: 45 Year
  Sex: Female
  Weight: 48.5 kg

DRUGS (2)
  1. PEGASYS [Suspect]
     Indication: HEPATITIS C
     Dosage: THE PATIENT INJECTED SUBCUTANEOUS PEGASYS 180 MCG/0.5 ML WEEKLY.
     Route: 058
     Dates: start: 20060615, end: 20061115
  2. RIBAVIRIN [Suspect]
     Indication: HEPATITIS C
     Dosage: THE PATIENT TOOK ORAL RIBAVIRIN 200 MG TABLETS TWICE DAILY.
     Route: 048
     Dates: start: 20060615, end: 20061115

REACTIONS (18)
  - ALOPECIA [None]
  - ANKYLOSING SPONDYLITIS [None]
  - CHEST PAIN [None]
  - DEHYDRATION [None]
  - DIARRHOEA [None]
  - DRY MOUTH [None]
  - DYSPNOEA [None]
  - FATIGUE [None]
  - HALLUCINATION [None]
  - HEADACHE [None]
  - MEMORY IMPAIRMENT [None]
  - NAUSEA [None]
  - NEUTROPENIA [None]
  - PYREXIA [None]
  - SARCOIDOSIS [None]
  - VOMITING [None]
  - WEIGHT DECREASED [None]
  - WHITE BLOOD CELL COUNT DECREASED [None]
